FAERS Safety Report 22320677 (Version 2)
Quarter: 2023Q2

REPORT INFORMATION
  Report Type: Spontaneous
  Country: TH (occurrence: TH)
  Receive Date: 20230515
  Receipt Date: 20230518
  Transmission Date: 20230722
  Serious: Yes (Other)
  Sender: FDA-Public Use
  Company Number: TH-002147023-NVSC2023TH107555

PATIENT
  Age: 73 Year
  Sex: Female

DRUGS (3)
  1. RIBOCICLIB [Suspect]
     Active Substance: RIBOCICLIB
     Indication: Hormone receptor positive HER2 negative breast cancer
     Dosage: 200, (3X1 (3 WEEKS ON 1 WEEK OFF))
     Route: 065
     Dates: start: 20200730
  2. RIBOCICLIB [Suspect]
     Active Substance: RIBOCICLIB
     Dosage: 200, (2X1 (3 WEEKS ON 1 WEEK OFF))
     Route: 065
     Dates: start: 20201008, end: 20220310
  3. FEMARA [Suspect]
     Active Substance: LETROZOLE
     Indication: Hormone receptor positive HER2 negative breast cancer
     Dosage: UNK (1X1)
     Route: 065

REACTIONS (8)
  - Metastases to lung [Unknown]
  - Hormone receptor positive HER2 negative breast cancer [Unknown]
  - Malignant neoplasm progression [Unknown]
  - Neutropenia [Recovered/Resolved]
  - Haemoglobin decreased [Unknown]
  - Haematocrit decreased [Unknown]
  - Condition aggravated [Unknown]
  - Therapy partial responder [Unknown]

NARRATIVE: CASE EVENT DATE: 20200711
